FAERS Safety Report 7934804-5 (Version None)
Quarter: 2011Q4

REPORT INFORMATION
  Report Type: 
  Country: None (occurrence: None)
  Receive Date: 20111122
  Receipt Date: 20111121
  Transmission Date: 20120403
  Serious: Yes (Life-Threatening)
  Sender: FDA-Public Use
  Company Number: JP-BAYER-2011-111750

PATIENT

DRUGS (2)
  1. ANTIBIOTICS [Concomitant]
     Indication: MENINGITIS BACTERIAL
     Route: 065
  2. CIPROFLOXACIN HCL [Suspect]
     Indication: MENINGITIS BACTERIAL
     Dosage: UNK
     Route: 041

REACTIONS (1)
  - CONVULSION [None]
